FAERS Safety Report 13452927 (Version 11)
Quarter: 2021Q1

REPORT INFORMATION
  Report Type: Report from Study
  Country: JP (occurrence: JP)
  Receive Date: 20170418
  Receipt Date: 20210121
  Transmission Date: 20210419
  Serious: Yes (Death, Other)
  Sender: FDA-Public Use
  Company Number: JP-INCYTE CORPORATION-2017IN002856

PATIENT

DRUGS (9)
  1. JAKAVI [Suspect]
     Active Substance: RUXOLITINIB
     Dosage: 5 MG, BID
     Route: 048
     Dates: start: 20170330, end: 20170331
  2. TACROLIMUS. [Concomitant]
     Active Substance: TACROLIMUS
     Indication: PRODUCT USED FOR UNKNOWN INDICATION
     Dosage: UNK
     Route: 065
  3. AMPHOTERICIN B. [Concomitant]
     Active Substance: AMPHOTERICIN B
     Indication: PRODUCT USED FOR UNKNOWN INDICATION
     Dosage: 2.5 MG/KG, UNK
     Route: 065
  4. CANCIDAS [Concomitant]
     Active Substance: CASPOFUNGIN ACETATE
     Indication: PRODUCT USED FOR UNKNOWN INDICATION
     Dosage: UNK
     Route: 065
  5. JAKAVI [Suspect]
     Active Substance: RUXOLITINIB
     Indication: MYELOFIBROSIS
     Dosage: 5 MG, BID
     Route: 048
     Dates: start: 20170314, end: 20170319
  6. JAKAVI [Suspect]
     Active Substance: RUXOLITINIB
     Indication: GRAFT VERSUS HOST DISEASE
     Dosage: 10 MG, BID
     Route: 048
     Dates: start: 20170320, end: 20170329
  7. RED CELLS MAP [Concomitant]
     Active Substance: HUMAN RED BLOOD CELL
     Indication: MYELOFIBROSIS
     Dosage: Q.S., UNK
     Route: 065
  8. METHYLPREDNISOLONE. [Concomitant]
     Active Substance: METHYLPREDNISOLONE
     Indication: PRODUCT USED FOR UNKNOWN INDICATION
     Dosage: UNK
     Route: 065
  9. AMPHOTERICIN B. [Concomitant]
     Active Substance: AMPHOTERICIN B
     Dosage: 5 MG/KG, UNK
     Route: 065

REACTIONS (17)
  - Papillary muscle infarction [Unknown]
  - Anuria [Unknown]
  - Retinal detachment [Unknown]
  - Cardiac valve vegetation [Fatal]
  - Rash [Unknown]
  - Myocardial infarction [Fatal]
  - Lung infiltration [Fatal]
  - Pulmonary mucormycosis [Fatal]
  - Skin mass [Fatal]
  - Hepatic vascular thrombosis [Fatal]
  - Abdominal pain [Unknown]
  - Renal infarct [Fatal]
  - Pyrexia [Unknown]
  - Bradycardia [Unknown]
  - Pulmonary embolism [Unknown]
  - Cerebral infarction [Unknown]
  - Lung disorder [Unknown]

NARRATIVE: CASE EVENT DATE: 20170329
